FAERS Safety Report 20805412 (Version 1)
Quarter: 2022Q2

REPORT INFORMATION
  Report Type: Spontaneous
  Country: US (occurrence: US)
  Receive Date: 20220510
  Receipt Date: 20220510
  Transmission Date: 20220720
  Serious: Yes (Hospitalization, Other)
  Sender: FDA-Public Use
  Company Number: US-AUROBINDO-AUR-APL-2022-015507

PATIENT
  Age: 58 Year
  Sex: Female

DRUGS (1)
  1. BACLOFEN [Suspect]
     Active Substance: BACLOFEN
     Indication: Product used for unknown indication
     Dosage: 10 MILLIGRAM, 3 TIMES A DAY
     Route: 065

REACTIONS (5)
  - Hallucination [Recovered/Resolved]
  - Hyperpyrexia [Recovered/Resolved]
  - Clonus [Unknown]
  - Muscle rigidity [Recovered/Resolved]
  - Withdrawal syndrome [Unknown]
